FAERS Safety Report 16102746 (Version 2)
Quarter: 2019Q2

REPORT INFORMATION
  Report Type: Spontaneous
  Country: CA (occurrence: CA)
  Receive Date: 20190321
  Receipt Date: 20190510
  Transmission Date: 20190711
  Serious: Yes (Other)
  Sender: FDA-Public Use
  Company Number: CA-JAZZ-2019-CA-004008

PATIENT
  Sex: Male
  Weight: 62.9 kg

DRUGS (1)
  1. VYXEOS [Suspect]
     Active Substance: CYTARABINE\DAUNORUBICIN
     Indication: ACUTE MYELOID LEUKAEMIA
     Dosage: 75 MG, DAYS 1,3,5
     Route: 042
     Dates: start: 20190118, end: 20190122

REACTIONS (1)
  - Angle closure glaucoma [Recovering/Resolving]
